FAERS Safety Report 4602717-2 (Version None)
Quarter: 2005Q1

REPORT INFORMATION
  Report Type: 
  Country: None (occurrence: None)
  Receive Date: 20050307
  Receipt Date: 20050214
  Transmission Date: 20050727
  Serious: Yes (Hospitalization, Other)
  Sender: FDA-Public Use
  Company Number: US_0407104230

PATIENT
  Age: 58 Year
  Sex: Female
  Weight: 82 kg

DRUGS (11)
  1. ZYPREXA [Suspect]
     Dosage: 20 MG DAY
     Dates: start: 19980527, end: 20040407
  2. PROZAC [Suspect]
     Dosage: 40 MG AT BEDTIME
  3. PAXIL [Concomitant]
  4. TRAZODONE HCL [Concomitant]
  5. ELAVIL [Concomitant]
  6. GLYBURIDE [Concomitant]
  7. METFORMIN HCL [Concomitant]
  8. REGULAR INSULIN [Concomitant]
  9. COGENTIN [Concomitant]
  10. SIMVASTATIN RATIOPHARM (SIMVASTATIN RATIOPHARM) [Concomitant]
  11. SEROQUEL [Concomitant]

REACTIONS (37)
  - ABSCESS LIMB [None]
  - AGGRESSION [None]
  - ALANINE AMINOTRANSFERASE INCREASED [None]
  - ANXIETY [None]
  - BACK PAIN [None]
  - BACTERIAL INFECTION [None]
  - BLOOD ALKALINE PHOSPHATASE INCREASED [None]
  - BLOOD CHOLESTEROL ABNORMAL [None]
  - BLOOD SODIUM DECREASED [None]
  - CELLULITIS [None]
  - CONDITION AGGRAVATED [None]
  - DECREASED APPETITE [None]
  - DEPRESSION [None]
  - DIABETES MELLITUS [None]
  - DIZZINESS [None]
  - ERYTHEMA [None]
  - GENITAL PRURITUS FEMALE [None]
  - HEADACHE [None]
  - HYPOAESTHESIA [None]
  - MENOPAUSAL DISORDER [None]
  - OEDEMA PERIPHERAL [None]
  - OSTEOMYELITIS [None]
  - OTITIS MEDIA [None]
  - PAIN [None]
  - PAIN IN EXTREMITY [None]
  - PARANOIA [None]
  - POLLAKIURIA [None]
  - REFUSAL OF TREATMENT BY PATIENT [None]
  - SUICIDAL IDEATION [None]
  - TENDERNESS [None]
  - THIRST [None]
  - TINEA CRURIS [None]
  - ULCER [None]
  - VISION BLURRED [None]
  - VISUAL ACUITY REDUCED [None]
  - VULVAL ABSCESS [None]
  - WEIGHT INCREASED [None]
